FAERS Safety Report 21510270 (Version 1)
Quarter: 2022Q4

REPORT INFORMATION
  Report Type: Spontaneous
  Country: US (occurrence: US)
  Receive Date: 20221026
  Receipt Date: 20221026
  Transmission Date: 20230113
  Serious: No
  Sender: FDA-Public Use
  Company Number: US-ALLERGAN-2032663US

PATIENT
  Age: 79 Year
  Sex: Female

DRUGS (5)
  1. ZENPEP [Suspect]
     Active Substance: PANCRELIPASE AMYLASE\PANCRELIPASE LIPASE\PANCRELIPASE PROTEASE
     Indication: Pancreatic failure
     Dosage: 40,000 UNITS TID WITH MEALS AND QD WITH SNACK
     Route: 048
     Dates: start: 20200824, end: 20200825
  2. CREON [Suspect]
     Active Substance: PANCRELIPASE AMYLASE\PANCRELIPASE LIPASE\PANCRELIPASE PROTEASE
     Indication: Pancreatic failure
     Dosage: TID WITH MEALS AND ONCE WITH A?SNACK (7 PILLS A DAY)
     Dates: start: 202007, end: 20200824
  3. FLAXSEED [Concomitant]
     Active Substance: FLAX SEED
     Indication: Supplementation therapy
  4. VITAMIN B [Concomitant]
     Active Substance: VITAMIN B
     Indication: Supplementation therapy
  5. VITAMIN D [Concomitant]
     Active Substance: VITAMIN D NOS
     Indication: Supplementation therapy

REACTIONS (25)
  - Malaise [Not Recovered/Not Resolved]
  - Blister [Not Recovered/Not Resolved]
  - Pain of skin [Not Recovered/Not Resolved]
  - Skin exfoliation [Not Recovered/Not Resolved]
  - Oral discomfort [Not Recovered/Not Resolved]
  - Vulvovaginal discomfort [Not Recovered/Not Resolved]
  - Anorectal discomfort [Not Recovered/Not Resolved]
  - Product administration error [Unknown]
  - Urticaria [Unknown]
  - Rash [Recovering/Resolving]
  - Drug hypersensitivity [Not Recovered/Not Resolved]
  - Swelling of eyelid [Unknown]
  - Dysuria [Unknown]
  - Burning sensation [Unknown]
  - Feeling abnormal [Unknown]
  - Stomatitis [Unknown]
  - Skin burning sensation [Unknown]
  - Stomatitis [Unknown]
  - Vulvovaginal burning sensation [Unknown]
  - Skin irritation [Unknown]
  - Expired product administered [Recovered/Resolved]
  - Anal incontinence [Unknown]
  - Diarrhoea [Unknown]
  - Arrhythmia [Unknown]
  - Atrial fibrillation [Unknown]

NARRATIVE: CASE EVENT DATE: 20200101
